FAERS Safety Report 8590700-4 (Version None)
Quarter: 2012Q3

REPORT INFORMATION
  Report Type: 
  Country: None (occurrence: None)
  Receive Date: 20120731
  Receipt Date: 20120716
  Transmission Date: 20120928
  Serious: Yes (Hospitalization)
  Sender: FDA-Public Use
  Company Number: 2012-002694

PATIENT
  Age: 80 Year
  Sex: Female
  Weight: 84 kg

DRUGS (4)
  1. BROMAZEPAM [Concomitant]
  2. ENABLEX [Suspect]
     Indication: URINARY INCONTINENCE
     Dosage: 15 MG DAILY, ORAL
     Route: 048
  3. LASIX [Concomitant]
  4. ENABLEX [Suspect]
     Dosage: 15 MG DAILY, ORAL

REACTIONS (13)
  - DYSURIA [None]
  - DRUG INEFFECTIVE [None]
  - NOCTURIA [None]
  - ASTHENIA [None]
  - POLLAKIURIA [None]
  - ACTIVITIES OF DAILY LIVING IMPAIRED [None]
  - FATIGUE [None]
  - MENORRHAGIA [None]
  - URINARY INCONTINENCE [None]
  - UTERINE CANCER [None]
  - BREAST NEOPLASM [None]
  - HEADACHE [None]
  - OVARIAN CANCER [None]
